FAERS Safety Report 7860056-0 (Version None)
Quarter: 2011Q4

REPORT INFORMATION
  Report Type: 
  Country: None (occurrence: None)
  Receive Date: 20111025
  Receipt Date: 20111013
  Transmission Date: 20120403
  Serious: Yes (Death)
  Sender: FDA-Public Use
  Company Number: NL-006547

PATIENT
  Sex: Male

DRUGS (4)
  1. HALOPERIDOL [Concomitant]
  2. FIRMAGON [Suspect]
     Indication: PROSTATE CANCER
     Dosage: 240 MG 1 X SUBCUTANEOUS)
     Route: 058
     Dates: start: 20110902, end: 20110902
  3. ENALAPRIL [Concomitant]
  4. ZOLPIDEM TARTRATE [Concomitant]

REACTIONS (2)
  - DIARRHOEA [None]
  - RENAL FAILURE [None]
